FAERS Safety Report 11101404 (Version 1)
Quarter: 2015Q2

REPORT INFORMATION
  Report Type: Spontaneous
  Country: DE (occurrence: DE)
  Receive Date: 20150508
  Receipt Date: 20150508
  Transmission Date: 20150821
  Serious: Yes (Other)
  Sender: FDA-Public Use
  Company Number: DE-TEVA-559314GER

PATIENT
  Age: 0 Year
  Sex: Male
  Weight: 3.9 kg

DRUGS (6)
  1. METHYLDOPA. [Concomitant]
     Active Substance: METHYLDOPA
     Indication: HYPERTENSION
     Dosage: 750 MILLIGRAM DAILY; FROM WEEK 6 UNTIL DELIVERY
     Route: 064
  2. FOLIO [Concomitant]
     Active Substance: FOLIC ACID
     Indication: PROPHYLAXIS OF NEURAL TUBE DEFECT
     Route: 064
  3. DOPEGYT [Concomitant]
     Active Substance: METHYLDOPA
     Indication: HYPERTENSION
     Dosage: 750 MILLIGRAM DAILY;
     Route: 064
  4. OXYTOCIN. [Concomitant]
     Active Substance: OXYTOCIN
     Indication: LABOUR INDUCTION
     Dosage: ON DAY 39+2
     Route: 064
  5. VENLAFAXINE [Suspect]
     Active Substance: VENLAFAXINE HYDROCHLORIDE
     Indication: DEPRESSION
     Route: 064
     Dates: start: 20140403, end: 20150103
  6. ANTIBIOTICS [Concomitant]
     Active Substance: UNSPECIFIED INGREDIENT
     Indication: INFLUENZA LIKE ILLNESS
     Dosage: FROM WEEK 38+1 TO 39+2
     Route: 064

REACTIONS (2)
  - Cerebral haemorrhage neonatal [Recovered/Resolved with Sequelae]
  - Foetal exposure during pregnancy [Unknown]
